FAERS Safety Report 6394865-4 (Version None)
Quarter: 2009Q4

REPORT INFORMATION
  Report Type: 
  Country: None (occurrence: None)
  Receive Date: 20091009
  Receipt Date: 20091005
  Transmission Date: 20100525
  Serious: Yes (Other)
  Sender: FDA-Public Use
  Company Number: US-BRISTOL-MYERS SQUIBB COMPANY-13332739

PATIENT
  Age: 75 Year
  Sex: Female
  Weight: 66 kg

DRUGS (13)
  1. COUMADIN [Suspect]
     Indication: ATRIAL FIBRILLATION
     Dosage: DURATION: 4 YEARS, INCREASED TO 7.5MG 1.5 TAB 1 DAY 7.5 MG ON OTHER DAYS
     Dates: start: 20020101
  2. COUMADIN [Suspect]
     Indication: CARDIAC PACEMAKER INSERTION
     Dosage: DURATION: 4 YEARS, INCREASED TO 7.5MG 1.5 TAB 1 DAY 7.5 MG ON OTHER DAYS
     Dates: start: 20020101
  3. SYNTHROID [Concomitant]
  4. LIPITOR [Concomitant]
  5. CITRUCEL [Concomitant]
  6. COLACE [Concomitant]
  7. FIBERCON [Concomitant]
  8. BENTYL [Concomitant]
     Dates: start: 20060801
  9. VITAMIN [Concomitant]
  10. PROPRANOLOL [Concomitant]
  11. CRESTOR [Concomitant]
  12. FISH OIL [Concomitant]
  13. CO-Q-10 PLUS [Concomitant]

REACTIONS (2)
  - FALL [None]
  - INTERNATIONAL NORMALISED RATIO DECREASED [None]
